FAERS Safety Report 6607971-3 (Version None)
Quarter: 2010Q1

REPORT INFORMATION
  Report Type: 
  Country: None (occurrence: None)
  Receive Date: 20100226
  Receipt Date: 20100226
  Transmission Date: 20100710
  Serious: Yes (Hospitalization)
  Sender: FDA-Public Use
  Company Number: None

PATIENT
  Age: 56 Year
  Sex: Male
  Weight: 116.1 kg

DRUGS (1)
  1. ADALIMUMAB [Suspect]
     Indication: RHEUMATOID ARTHRITIS
     Dosage: 40 MG OTHER IM
     Route: 030
     Dates: start: 20090430, end: 20090622

REACTIONS (1)
  - PNEUMONIA [None]
